FAERS Safety Report 17313656 (Version 16)
Quarter: 2020Q4

REPORT INFORMATION
  Report Type: Report from Study
  Country: US (occurrence: US)
  Receive Date: 20200124
  Receipt Date: 20201219
  Transmission Date: 20210113
  Serious: No
  Sender: FDA-Public Use
  Company Number: NVSC2020US016814

PATIENT
  Sex: Male

DRUGS (2)
  1. BEOVU [Suspect]
     Active Substance: BROLUCIZUMAB-DBLL
     Dosage: UNK (IN LEFT EYE)
     Route: 047
  2. BEOVU [Suspect]
     Active Substance: BROLUCIZUMAB-DBLL
     Indication: NEOVASCULAR AGE-RELATED MACULAR DEGENERATION
     Dosage: UNK (VIAL)
     Route: 047
     Dates: start: 20191204

REACTIONS (5)
  - Hypoacusis [Unknown]
  - Eye pain [Unknown]
  - Visual impairment [Not Recovered/Not Resolved]
  - Product dose omission issue [Unknown]
  - Drug ineffective [Not Recovered/Not Resolved]
